FAERS Safety Report 12091092 (Version 3)
Quarter: 2018Q1

REPORT INFORMATION
  Report Type: Spontaneous
  Country: DE (occurrence: DE)
  Receive Date: 20160218
  Receipt Date: 20180119
  Transmission Date: 20180508
  Serious: Yes (Life-Threatening, Hospitalization, Other)
  Sender: FDA-Public Use
  Company Number: DE-B.I. PHARMACEUTICALS,INC./RIDGEFIELD-2016-BI-08792DE

PATIENT
  Age: 60 Year
  Sex: Female
  Weight: 56 kg

DRUGS (2)
  1. PANTOZOL [Concomitant]
     Active Substance: PANTOPRAZOLE SODIUM
     Indication: PRODUCT USED FOR UNKNOWN INDICATION
     Route: 048
     Dates: start: 20151224, end: 20160202
  2. GILOTRIF [Suspect]
     Active Substance: AFATINIB
     Indication: LUNG ADENOCARCINOMA
     Route: 048
     Dates: start: 20151224, end: 20160203

REACTIONS (24)
  - Nikolsky^s sign [Unknown]
  - Pyrexia [Unknown]
  - Diarrhoea [Unknown]
  - Toxic epidermal necrolysis [Unknown]
  - Blister [Unknown]
  - Chills [Unknown]
  - Fatigue [Unknown]
  - Skin erosion [Unknown]
  - Skin graft detachment [Unknown]
  - Toxic epidermal necrolysis [Recovered/Resolved]
  - Rash macular [Unknown]
  - Hypoproteinaemia [Unknown]
  - Rash [Unknown]
  - Malaise [Unknown]
  - Skin fissures [Unknown]
  - Stevens-Johnson syndrome [Recovered/Resolved]
  - Lip dry [Unknown]
  - Lip haemorrhage [Unknown]
  - Blister [Unknown]
  - Erythema multiforme [Unknown]
  - Electrolyte imbalance [Unknown]
  - Leukopenia [Unknown]
  - Rash pruritic [Unknown]
  - Anaemia [Unknown]

NARRATIVE: CASE EVENT DATE: 20160124
